FAERS Safety Report 8987375 (Version 3)
Quarter: 2013Q1

REPORT INFORMATION
  Report Type: Spontaneous
  Country: BR (occurrence: BR)
  Receive Date: 20121226
  Receipt Date: 20130221
  Transmission Date: 20140127
  Serious: Yes (Hospitalization, Other)
  Sender: FDA-Public Use
  Company Number: BR-VERTEX PHARMACEUTICALS INC.-2012-026598

PATIENT
  Age: 73 None
  Sex: Male
  Weight: 64 kg

DRUGS (4)
  1. INCIVO [Suspect]
     Indication: HEPATITIS C
     Dosage: DOSAGE FORM: TABLET
     Route: 065
     Dates: start: 20121205
  2. INCIVO [Suspect]
     Dosage: DOSAGE FORM: TABLET
     Route: 065
     Dates: start: 2010
  3. RIBAVIRIN [Concomitant]
     Indication: HEPATITIS C
     Dosage: DOSAGE FORM: UNSPECIFIED
     Route: 065
     Dates: start: 20121205
  4. PEGASYS [Concomitant]
     Indication: HEPATITIS C
     Dosage: DOSAGE FORM: UNKNOWN
     Route: 065
     Dates: start: 20121205

REACTIONS (4)
  - Confusional state [Not Recovered/Not Resolved]
  - Amnesia [Not Recovered/Not Resolved]
  - Dysuria [Unknown]
  - Nausea [Recovered/Resolved]
